FAERS Safety Report 11306123 (Version 1)
Quarter: 2015Q3

REPORT INFORMATION
  Report Type: Spontaneous
  Country: GB (occurrence: GB)
  Receive Date: 20150723
  Receipt Date: 20150723
  Transmission Date: 20151125
  Serious: Yes (Life-Threatening, Disabling, Other)
  Sender: FDA-Public Use
  Company Number: GB-JNJFOC-20150710053

PATIENT
  Age: 19 Year
  Sex: Male
  Weight: 71.2 kg

DRUGS (18)
  1. MIFAMURTIDE [Interacting]
     Active Substance: MIFAMURTIDE
     Indication: ADJUVANT THERAPY
     Route: 065
     Dates: start: 20150205, end: 20150428
  2. MIFAMURTIDE [Interacting]
     Active Substance: MIFAMURTIDE
     Indication: OSTEOSARCOMA
     Route: 065
     Dates: start: 20150205, end: 20150428
  3. LORAZEPAM. [Concomitant]
     Active Substance: LORAZEPAM
     Route: 065
  4. DOXORUBICIN HYDROCHLORIDE. [Suspect]
     Active Substance: DOXORUBICIN HYDROCHLORIDE
     Indication: OSTEOSARCOMA
     Route: 042
     Dates: start: 20150205, end: 20150428
  5. MIFAMURTIDE [Interacting]
     Active Substance: MIFAMURTIDE
     Indication: ADJUVANT THERAPY
     Dosage: DOSE 2(UNITS UNSPECIFIED), CUMULATIVE DOSE (NO.) 10.2857142
     Route: 065
     Dates: start: 20150428, end: 20150701
  6. LEVOMEPROMAZINE [Concomitant]
     Active Substance: LEVOMEPROMAZINE
     Route: 065
  7. CYCLIZINE [Concomitant]
     Active Substance: CYCLIZINE
     Route: 065
  8. PARACETAMOL [Concomitant]
     Active Substance: ACETAMINOPHEN
     Route: 065
  9. APREPITANT. [Concomitant]
     Active Substance: APREPITANT
     Route: 065
  10. METHOTREXATE [Concomitant]
     Active Substance: METHOTREXATE
     Indication: OSTEOSARCOMA
     Route: 065
  11. ONDANSETRON [Concomitant]
     Active Substance: ONDANSETRON
     Route: 065
  12. TEICOPLANIN [Concomitant]
     Active Substance: TEICOPLANIN
     Route: 065
  13. MEROPENEM. [Concomitant]
     Active Substance: MEROPENEM
     Route: 065
  14. CISPLATIN. [Concomitant]
     Active Substance: CISPLATIN
     Indication: OSTEOSARCOMA
     Route: 065
  15. MIFAMURTIDE [Interacting]
     Active Substance: MIFAMURTIDE
     Indication: OSTEOSARCOMA
     Dosage: DOSE 2(UNITS UNSPECIFIED), CUMULATIVE DOSE (NO.) 10.2857142
     Route: 065
     Dates: start: 20150428, end: 20150701
  16. IBUPROFEN. [Concomitant]
     Active Substance: IBUPROFEN
     Route: 065
  17. FOLINIC ACID [Concomitant]
     Active Substance: LEUCOVORIN
     Route: 065
  18. DEXAMETHASONE SODIUM PHOSPHATE. [Concomitant]
     Active Substance: DEXAMETHASONE SODIUM PHOSPHATE
     Route: 065

REACTIONS (4)
  - Drug interaction [Unknown]
  - Cardiac disorder [Not Recovered/Not Resolved]
  - Product use issue [Unknown]
  - Cardiotoxicity [Not Recovered/Not Resolved]

NARRATIVE: CASE EVENT DATE: 20150205
